FAERS Safety Report 6128683-9 (Version None)
Quarter: 2009Q1

REPORT INFORMATION
  Report Type: 
  Country: None (occurrence: None)
  Receive Date: 20090323
  Receipt Date: 20090323
  Transmission Date: 20090719
  Serious: Yes (Other)
  Sender: FDA-Public Use
  Company Number: US-PFIZER INC-2009166305

PATIENT
  Age: 18 Year
  Sex: Male

DRUGS (7)
  1. SELZENTRY [Suspect]
     Indication: HIV INFECTION
     Dates: start: 20080101, end: 20090101
  2. OTRIVINE [Concomitant]
  3. DARUNAVIR [Concomitant]
  4. RITONAVIR [Suspect]
  5. ALL OTHER THERAPEUTIC PRODUCTS [Concomitant]
  6. MULTI-VITAMINS [Concomitant]
  7. COD-LIVER OIL [Concomitant]

REACTIONS (1)
  - CD4 LYMPHOCYTES DECREASED [None]
